FAERS Safety Report 18815960 (Version 2)
Quarter: 2021Q2

REPORT INFORMATION
  Report Type: Spontaneous
  Country: US (occurrence: US)
  Receive Date: 20210201
  Receipt Date: 20210514
  Transmission Date: 20210717
  Serious: Yes (Other)
  Sender: FDA-Public Use
  Company Number: US-GLAXOSMITHKLINE-US2021GSK023193

PATIENT
  Sex: Female

DRUGS (28)
  1. RANITIDINE. [Suspect]
     Active Substance: RANITIDINE
     Indication: ABDOMINAL DISCOMFORT
     Dosage: 75 MG BOTH
     Route: 065
     Dates: start: 201801, end: 201801
  2. ZANTAC [Suspect]
     Active Substance: RANITIDINE HYDROCHLORIDE
     Indication: ABDOMINAL DISCOMFORT
     Dosage: 75 MG BOTH
     Route: 065
     Dates: start: 199001, end: 201801
  3. ZANTAC [Suspect]
     Active Substance: RANITIDINE HYDROCHLORIDE
     Dosage: UNK
  4. RANITIDINE CAPSULE [Suspect]
     Active Substance: RANITIDINE
     Indication: ABDOMINAL DISCOMFORT
     Dosage: 75 MG BOTH
     Route: 065
     Dates: start: 201801, end: 201801
  5. RANITIDINE CAPSULE [Suspect]
     Active Substance: RANITIDINE
     Dosage: 75 MG
     Route: 065
     Dates: start: 201801, end: 201801
  6. RANITIDINE. [Suspect]
     Active Substance: RANITIDINE
     Dosage: 75 MG
     Route: 065
     Dates: start: 201801, end: 201801
  7. ZANTAC [Suspect]
     Active Substance: RANITIDINE HYDROCHLORIDE
     Indication: ABDOMINAL DISCOMFORT
     Dosage: 75 MG BOTH
     Route: 065
     Dates: start: 199001, end: 201801
  8. RANITIDINE. [Suspect]
     Active Substance: RANITIDINE
     Dosage: UNK
  9. ZANTAC [Suspect]
     Active Substance: RANITIDINE HYDROCHLORIDE
     Dosage: 150 MG
     Route: 065
     Dates: start: 199001, end: 201801
  10. RANITIDINE. [Suspect]
     Active Substance: RANITIDINE
     Dosage: UNK
  11. ZANTAC [Suspect]
     Active Substance: RANITIDINE HYDROCHLORIDE
     Dosage: 150 MG
     Route: 065
     Dates: start: 199001, end: 201801
  12. ZANTAC [Suspect]
     Active Substance: RANITIDINE HYDROCHLORIDE
     Dosage: UNK
  13. ZANTAC [Suspect]
     Active Substance: RANITIDINE HYDROCHLORIDE
     Dosage: 75 MG
     Route: 065
     Dates: start: 199001, end: 201801
  14. RANITIDINE. [Suspect]
     Active Substance: RANITIDINE
     Indication: ABDOMINAL DISCOMFORT
     Dosage: 75 MG BOTH
     Route: 065
     Dates: start: 201801, end: 201801
  15. RANITIDINE. [Suspect]
     Active Substance: RANITIDINE
     Dosage: 150 MG
     Route: 065
     Dates: start: 201801, end: 201801
  16. ZANTAC [Suspect]
     Active Substance: RANITIDINE HYDROCHLORIDE
     Dosage: 75 MG
     Route: 065
     Dates: start: 199001, end: 201801
  17. RANITIDINE. [Suspect]
     Active Substance: RANITIDINE
     Indication: ABDOMINAL DISCOMFORT
     Dosage: 75 MG BOTH
     Route: 065
     Dates: start: 201801, end: 201801
  18. RANITIDINE. [Suspect]
     Active Substance: RANITIDINE
     Dosage: 75 MG
     Route: 065
     Dates: start: 201801, end: 201801
  19. ZANTAC [Suspect]
     Active Substance: RANITIDINE HYDROCHLORIDE
     Indication: ABDOMINAL DISCOMFORT
     Dosage: 75 MG BOTH
     Route: 065
     Dates: start: 199001, end: 201801
  20. RANITIDINE. [Suspect]
     Active Substance: RANITIDINE
     Dosage: UNK
  21. ZANTAC [Suspect]
     Active Substance: RANITIDINE HYDROCHLORIDE
     Dosage: UNK
  22. RANITIDINE. [Suspect]
     Active Substance: RANITIDINE
     Dosage: 150 MG
     Route: 065
     Dates: start: 201801, end: 201801
  23. RANITIDINE. [Suspect]
     Active Substance: RANITIDINE
     Dosage: 75 MG
     Route: 065
     Dates: start: 201801, end: 201801
  24. RANITIDINE. [Suspect]
     Active Substance: RANITIDINE
     Dosage: 150 MG
     Route: 065
     Dates: start: 201801, end: 201801
  25. ZANTAC [Suspect]
     Active Substance: RANITIDINE HYDROCHLORIDE
     Dosage: 150 MG
     Route: 065
     Dates: start: 199001, end: 201801
  26. RANITIDINE CAPSULE [Suspect]
     Active Substance: RANITIDINE
     Dosage: 75 MG
     Route: 065
     Dates: start: 199001, end: 201801
  27. RANITIDINE CAPSULE [Suspect]
     Active Substance: RANITIDINE
     Dosage: 150 MG
     Route: 065
     Dates: start: 201801, end: 201801
  28. ZANTAC [Suspect]
     Active Substance: RANITIDINE HYDROCHLORIDE
     Dosage: UNK

REACTIONS (1)
  - Colorectal cancer [Unknown]
